FAERS Safety Report 20676538 (Version 3)
Quarter: 2022Q3

REPORT INFORMATION
  Report Type: Report from Study
  Country: CA (occurrence: US)
  Receive Date: 20220405
  Receipt Date: 20220827
  Transmission Date: 20221026
  Serious: Yes (Other)
  Sender: FDA-Public Use
  Company Number: CA-ABBVIE-22K-028-4342750-00

PATIENT
  Age: 32 Year
  Sex: Male
  Weight: 65 kg

DRUGS (11)
  1. UPADACITINIB [Suspect]
     Active Substance: UPADACITINIB
     Indication: Dermatitis atopic
     Route: 048
     Dates: start: 20211207
  2. BETADERM [Concomitant]
     Active Substance: BETAMETHASONE VALERATE
     Indication: Dermatitis atopic
     Dosage: 1 APPLICATION %, 0.1 %
     Route: 061
     Dates: start: 20210513
  3. HYDROXYZINE HYDROCHLORIDE [Concomitant]
     Active Substance: HYDROXYZINE HYDROCHLORIDE
     Indication: Dermatitis atopic
     Dosage: QHS
     Route: 048
     Dates: start: 20210513
  4. CETIRIZINE HCL [Concomitant]
     Active Substance: CETIRIZINE HYDROCHLORIDE
     Indication: Dermatitis atopic
     Dosage: AS REQUIRED
     Route: 048
     Dates: start: 20210513
  5. TIAMOL [Concomitant]
     Indication: Dermatitis atopic
     Dosage: 1 APPLICATION
     Route: 048
     Dates: start: 20210920
  6. ELIDEL [Concomitant]
     Active Substance: PIMECROLIMUS
     Indication: Dermatitis atopic
     Dosage: 1 APPLICATION,1%
     Route: 061
     Dates: start: 20210920
  7. PROTOPIC [Concomitant]
     Active Substance: TACROLIMUS
     Indication: Dermatitis atopic
     Dosage: 1 APPLICATION,0.1% AS REQUIRED
     Route: 061
     Dates: start: 20210920
  8. VITAMIN D [Concomitant]
     Active Substance: VITAMIN D NOS
     Indication: Nutritional supplementation
     Dosage: CONTINUOUS
     Route: 048
     Dates: start: 201009
  9. VITAMIN C [Concomitant]
     Active Substance: ASCORBIC ACID
     Indication: Nutritional supplementation
     Dosage: CONTINUOUS
     Route: 048
     Dates: start: 201009
  10. FISH OIL [Concomitant]
     Active Substance: FISH OIL
     Indication: Nutritional supplementation
     Dosage: CONTINUOUS
     Route: 048
     Dates: start: 201009
  11. VITAMINS [Concomitant]
     Active Substance: VITAMINS
     Indication: Nutritional supplementation
     Dosage: 1 CAPLET,CONTINUOUS
     Route: 048
     Dates: start: 201009

REACTIONS (1)
  - Cataract [Recovered/Resolved]

NARRATIVE: CASE EVENT DATE: 20220317
